FAERS Safety Report 7937124-8 (Version None)
Quarter: 2011Q4

REPORT INFORMATION
  Report Type: 
  Country: None (occurrence: None)
  Receive Date: 20111123
  Receipt Date: 20111121
  Transmission Date: 20120403
  Serious: Yes (Hospitalization, Other)
  Sender: FDA-Public Use
  Company Number: US-BAYER-2011-112444

PATIENT
  Age: 51 Year
  Sex: Female

DRUGS (1)
  1. INTERFERON BETA-1B [Suspect]
     Indication: RELAPSING-REMITTING MULTIPLE SCLEROSIS
     Dosage: UNK
     Route: 058
     Dates: start: 19950720, end: 20110324

REACTIONS (4)
  - ENCEPHALITIS HERPES [None]
  - RENAL FAILURE [None]
  - IMMUNODEFICIENCY [None]
  - CONVULSION [None]
